FAERS Safety Report 5072249-9 (Version None)
Quarter: 2006Q3

REPORT INFORMATION
  Report Type: 
  Country: None (occurrence: None)
  Receive Date: 20060710
  Receipt Date: 20051109
  Transmission Date: 20061208
  Serious: Yes (Hospitalization)
  Sender: FDA-Public Use
  Company Number: PHEH2005US07760

PATIENT
  Age: 62 Year
  Sex: Female
  Weight: 75.3 kg

DRUGS (10)
  1. GLEEVEC [Suspect]
     Indication: GASTROINTESTINAL STROMAL TUMOUR
     Dosage: SEE IMAGE
     Route: 048
     Dates: start: 20040301, end: 20050801
  2. GLEEVEC [Suspect]
     Indication: GASTROINTESTINAL STROMAL TUMOUR
     Dosage: SEE IMAGE
     Route: 048
     Dates: start: 20051010
  3. ZOFRAN [Concomitant]
  4. ANZEMET [Concomitant]
  5. ATIVAN [Concomitant]
  6. PHENERGAN (PROMETHAZINE HYDROCHLORIDE) [Concomitant]
  7. PRILOSEC [Concomitant]
  8. PEPCID AC [Concomitant]
  9. ZYRTEC [Concomitant]
  10. SYNTHROID [Concomitant]

REACTIONS (5)
  - ABDOMINAL PAIN [None]
  - FATIGUE [None]
  - NAUSEA [None]
  - PANCREATITIS ACUTE [None]
  - REFLUX OESOPHAGITIS [None]
